FAERS Safety Report 23432805 (Version 3)
Quarter: 2024Q1

REPORT INFORMATION
  Report Type: Report from Study
  Country: MX (occurrence: None)
  Receive Date: 20240123
  Receipt Date: 20240207
  Transmission Date: 20240410
  Serious: Yes (Other)
  Sender: FDA-Public Use
  Company Number: 2020SE84937

PATIENT
  Age: 573 Month
  Sex: Female
  Weight: 88 kg

DRUGS (1)
  1. TAGRISSO [Suspect]
     Active Substance: OSIMERTINIB
     Indication: Lung neoplasm malignant
     Route: 048
     Dates: start: 20190819

REACTIONS (5)
  - Lymphadenopathy [Unknown]
  - Oesophagitis [Unknown]
  - Thyroid mass [Unknown]
  - Hiatus hernia [Unknown]
  - Post procedural complication [Unknown]

NARRATIVE: CASE EVENT DATE: 20230227
